FAERS Safety Report 6525779-4 (Version None)
Quarter: 2009Q4

REPORT INFORMATION
  Report Type: 
  Country: None (occurrence: None)
  Receive Date: 20091228
  Receipt Date: 20091210
  Transmission Date: 20100525
  Serious: Yes (Other)
  Sender: FDA-Public Use
  Company Number: 230008L09CAN

PATIENT
  Age: 62 Year
  Sex: Female

DRUGS (3)
  1. INTERFERON [Suspect]
     Indication: HEPATITIS C
     Dates: start: 19980101
  2. INTERFERON [Suspect]
     Indication: OFF LABEL USE
     Dates: start: 19980101
  3. RIBAVIRIN [Concomitant]

REACTIONS (18)
  - ASCITES [None]
  - BETA HAEMOLYTIC STREPTOCOCCAL INFECTION [None]
  - CHOLANGITIS [None]
  - ESCHERICHIA INFECTION [None]
  - FATIGUE [None]
  - HAEMOLYTIC ANAEMIA [None]
  - HYPOPHAGIA [None]
  - KIDNEY TRANSPLANT REJECTION [None]
  - LOCALISED INTRAABDOMINAL FLUID COLLECTION [None]
  - MALNUTRITION [None]
  - NAUSEA [None]
  - PERITONITIS BACTERIAL [None]
  - SCLEROSING ENCAPSULATING PERITONITIS [None]
  - SMALL INTESTINAL OBSTRUCTION [None]
  - TRANSAMINASES INCREASED [None]
  - VOMITING [None]
  - WAIST CIRCUMFERENCE INCREASED [None]
  - WEIGHT DECREASED [None]
